FAERS Safety Report 18124708 (Version 4)
Quarter: 2020Q3

REPORT INFORMATION
  Report Type: Spontaneous
  Country: US (occurrence: US)
  Receive Date: 20200807
  Receipt Date: 20200910
  Transmission Date: 20201103
  Serious: Yes (Hospitalization, Other)
  Sender: FDA-Public Use
  Company Number: US-GLENMARK PHARMACEUTICALS-2020GMK048992

PATIENT
  Age: 40 Year
  Sex: Female

DRUGS (8)
  1. ACICLOVIR [Concomitant]
     Active Substance: ACYCLOVIR
     Indication: PROPHYLAXIS
     Dosage: 400 MILLIGRAM, BID
     Route: 065
  2. SULFAMETHOXAZOLE AND TRIMETHOPRIM [Concomitant]
     Active Substance: SULFAMETHOXAZOLE\TRIMETHOPRIM
     Indication: PROPHYLAXIS
     Dosage: UNK, QD (SINGLE STRENGTH)
     Route: 065
  3. CLARITHROMYCIN. [Concomitant]
     Active Substance: CLARITHROMYCIN
     Indication: MYCOBACTERIUM ABSCESSUS INFECTION
  4. METHYLPREDNISOLONE. [Concomitant]
     Active Substance: METHYLPREDNISOLONE
     Indication: IMMUNOSUPPRESSANT DRUG THERAPY
     Dosage: 4 MILLIGRAM, BID
     Route: 065
  5. CLARITHROMYCIN. [Concomitant]
     Active Substance: CLARITHROMYCIN
     Indication: PNEUMONIA
     Dosage: 500 MILLIGRAM, BID
     Route: 065
  6. ATENOLOL. [Concomitant]
     Active Substance: ATENOLOL
     Indication: SINUS TACHYCARDIA
     Dosage: 12.5 MILLIGRAM, QD
     Route: 065
  7. TACROLIMUS. [Suspect]
     Active Substance: TACROLIMUS
     Dosage: TACROLIMUS WAS RESTARTED AT A DOSE OF 0.5 MILLIGRAM, BID
     Route: 065
  8. TACROLIMUS. [Suspect]
     Active Substance: TACROLIMUS
     Indication: IMMUNOSUPPRESSANT DRUG THERAPY
     Dosage: 1 MILLIGRAM, BID
     Route: 065

REACTIONS (16)
  - Hypertension [Recovering/Resolving]
  - Mycobacterium abscessus infection [Recovering/Resolving]
  - Immunosuppressant drug level increased [Recovered/Resolved]
  - Hyperglycaemia [Recovering/Resolving]
  - Confusional state [Recovered/Resolved]
  - Encephalopathy [Recovering/Resolving]
  - Pneumonia [Recovering/Resolving]
  - Hyperkalaemia [Recovering/Resolving]
  - Muscle spasms [Recovered/Resolved]
  - Sepsis [Recovering/Resolving]
  - Bronchitis [Recovering/Resolving]
  - Toxicity to various agents [Recovering/Resolving]
  - Pseudomonas infection [Recovering/Resolving]
  - Electrolyte imbalance [Recovering/Resolving]
  - Somnolence [Recovered/Resolved]
  - Acute kidney injury [Recovering/Resolving]
